FAERS Safety Report 19935261 (Version 2)
Quarter: 2022Q1

REPORT INFORMATION
  Report Type: Report from Study
  Country: US (occurrence: US)
  Receive Date: 20211008
  Receipt Date: 20220302
  Transmission Date: 20220423
  Serious: No
  Sender: FDA-Public Use
  Company Number: US-SA-SAC20211004001485

PATIENT
  Age: 60 Year
  Sex: Female

DRUGS (3)
  1. DUPIXENT [Suspect]
     Active Substance: DUPILUMAB
     Indication: Dermatitis atopic
     Dosage: 300 MG, QOW
     Route: 058
     Dates: start: 202009, end: 20210808
  2. SOAP [Concomitant]
     Active Substance: SOAP
  3. MODERNA COVID-19 VACCINE [Concomitant]
     Active Substance: ELASOMERAN

REACTIONS (6)
  - Pruritus [Unknown]
  - Sleep disorder [Unknown]
  - Skin weeping [Unknown]
  - Skin fissures [Unknown]
  - Dry skin [Unknown]
  - Eczema [Unknown]
